FAERS Safety Report 10354874 (Version 1)
Quarter: 2014Q3

REPORT INFORMATION
  Report Type: Spontaneous
  Country: US (occurrence: None)
  Receive Date: 20140729
  Receipt Date: 20140729
  Transmission Date: 20150326
  Serious: Yes (Death)
  Sender: FDA-Public Use
  Company Number: INS201407-000141

PATIENT
  Age: 75 Year
  Sex: Male

DRUGS (1)
  1. SUBSYS [Suspect]
     Active Substance: FENTANYL
     Route: 060

REACTIONS (1)
  - Death [None]

NARRATIVE: CASE EVENT DATE: 20130915
